FAERS Safety Report 4523527-0 (Version None)
Quarter: 2004Q4

REPORT INFORMATION
  Report Type: 
  Country: None (occurrence: None)
  Receive Date: 20041210
  Receipt Date: 20041207
  Transmission Date: 20050328
  Serious: Yes (Other)
  Sender: FDA-Public Use
  Company Number: NL-MERCK-0412NLD00003

PATIENT
  Age: 79 Year
  Sex: Female

DRUGS (4)
  1. GLICLAZIDE [Concomitant]
     Indication: DIABETES MELLITUS
     Route: 048
     Dates: start: 20010903
  2. ZOCOR [Suspect]
     Indication: HYPERCHOLESTEROLAEMIA
     Route: 048
     Dates: start: 20020916, end: 20040613
  3. BISOPROLOL FUMARATE [Concomitant]
     Indication: HYPERTENSION
     Route: 048
     Dates: start: 20010903
  4. CARBASPIRIN CALCIUM [Concomitant]
     Indication: HYPERTENSION
     Route: 048
     Dates: start: 20010903

REACTIONS (1)
  - AMNESIA [None]
